FAERS Safety Report 4350169-2 (Version None)
Quarter: 2004Q2

REPORT INFORMATION
  Report Type: 
  Country: None (occurrence: None)
  Receive Date: 20040428
  Receipt Date: 20040428
  Transmission Date: 20050107
  Serious: Yes (Other)
  Sender: FDA-Public Use
  Company Number: None

PATIENT
  Age: 76 Year
  Sex: Female
  Weight: 80.7403 kg

DRUGS (14)
  1. GATIFLOXACIN [Suspect]
     Indication: URINARY TRACT INFECTION
  2. GLYBURIDE [Suspect]
     Indication: DIABETES MELLITUS
  3. METFORMIN HCL [Suspect]
     Indication: DIABETES MELLITUS
  4. CLOTRIMAZOLE [Concomitant]
  5. DEXTROSE 5% /NACL [Concomitant]
  6. DILTIAZEM (TIAZAC) [Concomitant]
  7. GATIFLOXACIN [Concomitant]
  8. GLYBURIDE [Concomitant]
  9. LOVASTATIN [Concomitant]
  10. METFORMIN HCL [Concomitant]
  11. OXYBUTYNIN CHLORIDE [Concomitant]
  12. POTASSIUM CHLORIDE [Concomitant]
  13. UREA CREAM [Concomitant]
  14. COUMADIN [Concomitant]

REACTIONS (1)
  - HYPOGLYCAEMIA [None]
